FAERS Safety Report 9922395 (Version 1)
Quarter: 2014Q1

REPORT INFORMATION
  Report Type: Spontaneous
  Country: US (occurrence: US)
  Receive Date: 20140225
  Receipt Date: 20140225
  Transmission Date: 20141002
  Serious: Yes (Other)
  Sender: FDA-Public Use
  Company Number: US-BAYER-2014-029288

PATIENT
  Age: 80 Year
  Sex: Male
  Weight: 120 kg

DRUGS (13)
  1. ALEVE TABLET [Suspect]
     Dosage: 2 DF, ONCE
     Route: 048
     Dates: start: 20140222, end: 20140222
  2. BAYER GENUINE ASPIRIN ORIGINAL STRENGTH [Suspect]
     Dosage: UNK UNK, DAILY
  3. DOCUSATE [Concomitant]
  4. AMLODIPINE [Concomitant]
  5. OMEPRAZOLE [Concomitant]
  6. VITAMIN D3 [Concomitant]
  7. LISINOPRIL [Concomitant]
  8. SIMVASTATIN [Concomitant]
  9. GABAPENTIN [Concomitant]
  10. GLIPIZIDE [Concomitant]
  11. CLOPIDOGREL [Concomitant]
  12. LEVOTHYROXINE [Concomitant]
  13. HYDROCODONE [Concomitant]

REACTIONS (4)
  - Dyspnoea [Not Recovered/Not Resolved]
  - Swelling face [Not Recovered/Not Resolved]
  - Erythema [Not Recovered/Not Resolved]
  - Intentional drug misuse [None]
